FAERS Safety Report 19584625 (Version 2)
Quarter: 2021Q3

REPORT INFORMATION
  Report Type: Spontaneous
  Country: TW (occurrence: TW)
  Receive Date: 20210720
  Receipt Date: 20210826
  Transmission Date: 20211014
  Serious: Yes (Death, Hospitalization)
  Sender: FDA-Public Use
  Company Number: TW-MYLANLABS-2021M1044266

PATIENT
  Age: 44 Year
  Sex: Male

DRUGS (3)
  1. COLISTIMETHATE SODIUM. [Suspect]
     Active Substance: COLISTIMETHATE SODIUM
     Indication: ACINETOBACTER BACTERAEMIA
     Dosage: 4 MU
     Route: 042
  2. VORICONAZOLE. [Suspect]
     Active Substance: VORICONAZOLE
     Indication: FUNGAEMIA
     Dosage: 300 MILLIGRAM, BID
     Route: 042
  3. CEFOPERAZONE + SULBACTAM [Suspect]
     Active Substance: CEFOPERAZONE SODIUM\SULBACTAM
     Indication: ACINETOBACTER BACTERAEMIA
     Dosage: 2000 MILLIGRAM, BID
     Route: 042

REACTIONS (1)
  - Drug ineffective [Fatal]
